FAERS Safety Report 8975878 (Version 1)
Quarter: 2012Q4

REPORT INFORMATION
  Report Type: 
  Country: US (occurrence: US)
  Receive Date: 20121219
  Receipt Date: 20121219
  Transmission Date: 20130627
  Serious: Yes (Death)
  Sender: FDA-Public Use
  Company Number: US-MYLANLABS-2012S1014185

PATIENT
  Age: 38 Year
  Sex: Male

DRUGS (5)
  1. CITALOPRAM [Suspect]
     Indication: DEPRESSION
     Route: 048
     Dates: start: 201203, end: 20120620
  2. CITALOPRAM [Suspect]
     Indication: IRRITABILITY
     Route: 048
     Dates: start: 201203, end: 20120620
  3. CITALOPRAM [Suspect]
     Indication: ANXIETY
     Route: 048
     Dates: start: 201203, end: 20120620
  4. MOBIC [Concomitant]
     Indication: BACK PAIN
     Dates: start: 201203
  5. LORTAB [Concomitant]
     Indication: BACK PAIN
     Dates: start: 201203

REACTIONS (5)
  - Completed suicide [Fatal]
  - Suicide attempt [Recovered/Resolved]
  - Suicidal ideation [Fatal]
  - Decreased appetite [Recovered/Resolved]
  - Gun shot wound [None]
